FAERS Safety Report 8922244 (Version 1)
Quarter: 2012Q4

REPORT INFORMATION
  Report Type: 
  Country: US (occurrence: US)
  Receive Date: 20121123
  Receipt Date: 20121123
  Transmission Date: 20130627
  Serious: Yes (Other)
  Sender: FDA-Public Use
  Company Number: PHEH2012US022347

PATIENT
  Age: 82 Year
  Sex: Male

DRUGS (5)
  1. EXELON PATCH [Suspect]
     Dosage: 4.6 mg, UNK
     Route: 062
  2. NAMENDA [Concomitant]
  3. CEREFOLIN [Concomitant]
  4. COUMADINE [Concomitant]
  5. ARICEPT [Concomitant]

REACTIONS (5)
  - Pulmonary thrombosis [Not Recovered/Not Resolved]
  - Thrombosis [Not Recovered/Not Resolved]
  - Aspiration [Not Recovered/Not Resolved]
  - Application site pruritus [Not Recovered/Not Resolved]
  - Application site erythema [Not Recovered/Not Resolved]
